FAERS Safety Report 21516711 (Version 1)
Quarter: 2022Q4

REPORT INFORMATION
  Report Type: Report from Study
  Country: TW (occurrence: TW)
  Receive Date: 20221027
  Receipt Date: 20221027
  Transmission Date: 20230113
  Serious: Yes (Other)
  Sender: FDA-Public Use
  Company Number: TW-JNJFOC-20221034170

PATIENT
  Sex: Male

DRUGS (3)
  1. INVEGA SUSTENNA [Suspect]
     Active Substance: PALIPERIDONE PALMITATE
     Indication: Product used for unknown indication
     Route: 030
  2. INVEGA SUSTENNA [Suspect]
     Active Substance: PALIPERIDONE PALMITATE
  3. INVEGA SUSTENNA [Suspect]
     Active Substance: PALIPERIDONE PALMITATE

REACTIONS (8)
  - Arrhythmia [Unknown]
  - Suicidal ideation [Unknown]
  - Parkinson^s disease [Recovering/Resolving]
  - Wheezing [Recovering/Resolving]
  - Hypertension [Recovering/Resolving]
  - Cardiac hypertrophy [Recovering/Resolving]
  - Aggression [Unknown]
  - Tobacco abuse [Unknown]

NARRATIVE: CASE EVENT DATE: 20221001
